FAERS Safety Report 12624041 (Version 1)
Quarter: 2016Q3

REPORT INFORMATION
  Report Type: Spontaneous
  Country: US (occurrence: US)
  Receive Date: 20160804
  Receipt Date: 20160804
  Transmission Date: 20161109
  Serious: No
  Sender: FDA-Public Use
  Company Number: US-ASTRAZENECA-2016SE67231

PATIENT
  Age: 50 Year
  Sex: Female
  Weight: 94.3 kg

DRUGS (10)
  1. BYETTA [Suspect]
     Active Substance: EXENATIDE
     Indication: TYPE 2 DIABETES MELLITUS
     Route: 058
     Dates: start: 2012
  2. EUPUTROTRON HCL XL [Concomitant]
     Route: 048
     Dates: start: 2008
  3. CLONODINE HCL [Concomitant]
     Indication: HYPERTENSION
     Route: 048
     Dates: start: 2008
  4. METFORMIN [Concomitant]
     Active Substance: METFORMIN HYDROCHLORIDE
     Indication: TYPE 2 DIABETES MELLITUS
     Route: 048
     Dates: start: 2012
  5. AMLODIPINE BESYLATE. [Concomitant]
     Active Substance: AMLODIPINE BESYLATE
     Indication: HYPERTENSION
     Route: 048
     Dates: start: 2008
  6. ALLOPURINOL. [Concomitant]
     Active Substance: ALLOPURINOL
     Indication: GOUT
     Route: 048
     Dates: start: 2013
  7. AMYTRIPTYLINE [Concomitant]
     Indication: INSOMNIA
     Route: 048
  8. PROVASTATIN [Concomitant]
     Indication: BLOOD CHOLESTEROL INCREASED
     Route: 048
     Dates: start: 2008
  9. LISINOPRIL. [Suspect]
     Active Substance: LISINOPRIL
     Indication: HYPERTENSION
     Route: 048
     Dates: start: 2008
  10. LABETALOL [Concomitant]
     Active Substance: LABETALOL\LABETALOL HYDROCHLORIDE
     Indication: HYPERTENSION
     Route: 048
     Dates: start: 2008

REACTIONS (9)
  - Blood glucose increased [Not Recovered/Not Resolved]
  - Diabetes mellitus [Unknown]
  - Device failure [Unknown]
  - Drug dose omission [Not Recovered/Not Resolved]
  - Blood cholesterol increased [Unknown]
  - Visual impairment [Unknown]
  - Incorrect dose administered [Unknown]
  - Gout [Unknown]
  - Tremor [Unknown]

NARRATIVE: CASE EVENT DATE: 2008
